FAERS Safety Report 12744551 (Version 4)
Quarter: 2019Q1

REPORT INFORMATION
  Report Type: Spontaneous
  Country: US (occurrence: US)
  Receive Date: 20160914
  Receipt Date: 20190329
  Transmission Date: 20190417
  Serious: No
  Sender: FDA-Public Use
  Company Number: US-JAZZ-2016-US-009539

PATIENT
  Age: 41 Year
  Sex: Female

DRUGS (33)
  1. TRAMADOL HCL [Concomitant]
     Active Substance: TRAMADOL HYDROCHLORIDE
  2. VERAPAMIL HYDROCHLORIDE. [Concomitant]
     Active Substance: VERAPAMIL HYDROCHLORIDE
  3. DEMEROL [Concomitant]
     Active Substance: MEPERIDINE HYDROCHLORIDE
  4. MELATONIN [Concomitant]
     Active Substance: MELATONIN
  5. FOLIC ACID. [Concomitant]
     Active Substance: FOLIC ACID
  6. MENADIONE [Concomitant]
     Active Substance: MENADIONE
  7. XYREM [Suspect]
     Active Substance: SODIUM OXYBATE
     Dosage: 4.5 G, BID
     Route: 048
     Dates: start: 201209
  8. XANAX [Concomitant]
     Active Substance: ALPRAZOLAM
  9. IODINE. [Concomitant]
     Active Substance: IODINE
  10. XYREM [Suspect]
     Active Substance: SODIUM OXYBATE
     Indication: NARCOLEPSY
     Dosage: 2.25 G, BID
     Route: 048
     Dates: start: 201203, end: 201204
  11. XYREM [Suspect]
     Active Substance: SODIUM OXYBATE
     Dosage: 3 G, BID
     Route: 048
     Dates: start: 201204, end: 201209
  12. MOMETASONE FUROATE. [Suspect]
     Active Substance: MOMETASONE FUROATE
     Indication: PRODUCT USED FOR UNKNOWN INDICATION
  13. DICLOFENAC [Suspect]
     Active Substance: DICLOFENAC
     Indication: MIGRAINE
  14. PROMETHAZINE [Concomitant]
     Active Substance: PROMETHAZINE\PROMETHAZINE HYDROCHLORIDE
  15. MAGNESIUM [Concomitant]
     Active Substance: MAGNESIUM
  16. SELENIUM [Concomitant]
     Active Substance: SELENIUM
  17. TRAZODONE HYDROCHLORIDE. [Concomitant]
     Active Substance: TRAZODONE HYDROCHLORIDE
  18. ALBUTEROL SULFATE. [Concomitant]
     Active Substance: ALBUTEROL SULFATE
  19. MAGNESIUM CITRATE. [Concomitant]
     Active Substance: MAGNESIUM CITRATE
  20. MINIVELLE [Concomitant]
     Active Substance: ESTRADIOL
  21. NATURE-THROID [Concomitant]
     Active Substance: THYROID, PORCINE
  22. KLONOPIN [Concomitant]
     Active Substance: CLONAZEPAM
  23. WESTHROID [Concomitant]
     Active Substance: THYROGLOBULIN
  24. CALCIUM CITRATE WITH VITAMIN D3 [Concomitant]
     Active Substance: CALCIUM CITRATE\CHOLECALCIFEROL
  25. ASCORBIC ACID. [Concomitant]
     Active Substance: ASCORBIC ACID
  26. VITAMIN D3 [Concomitant]
     Active Substance: CHOLECALCIFEROL
  27. ZINC GLUCONATE [Concomitant]
     Active Substance: ZINC GLUCONATE
  28. CALCARB [Concomitant]
  29. ZINC ACETATE [Concomitant]
     Active Substance: ZINC ACETATE
  30. ATIVAN [Concomitant]
     Active Substance: LORAZEPAM
  31. CHROMIUM PICOLINATE [Concomitant]
     Active Substance: CHROMIUM PICOLINATE
  32. SPIRONOLACTONE. [Concomitant]
     Active Substance: SPIRONOLACTONE
  33. VERAPAMIL [Concomitant]
     Active Substance: VERAPAMIL HYDROCHLORIDE

REACTIONS (10)
  - Loss of personal independence in daily activities [Unknown]
  - Migraine [Unknown]
  - Gastrointestinal disorder [Unknown]
  - Fatigue [Recovering/Resolving]
  - Nausea [Recovered/Resolved]
  - Blood pressure fluctuation [Unknown]
  - Spondylitis [Not Recovered/Not Resolved]
  - Intervertebral disc protrusion [Not Recovered/Not Resolved]
  - Nasopharyngitis [Unknown]
  - Seasonal allergy [Not Recovered/Not Resolved]

NARRATIVE: CASE EVENT DATE: 2016
